FAERS Safety Report 6210802-7 (Version None)
Quarter: 2009Q2

REPORT INFORMATION
  Report Type: 
  Country: None (occurrence: None)
  Receive Date: 20090601
  Receipt Date: 20090520
  Transmission Date: 20091009
  Serious: Yes (Other)
  Sender: FDA-Public Use
  Company Number: JP-PFIZER INC-2009216899

PATIENT
  Age: 65 Year

DRUGS (2)
  1. IDARUBICIN HCL [Suspect]
     Indication: MYELODYSPLASTIC SYNDROME
     Route: 042
  2. CYTARABINE [Suspect]
     Indication: MYELODYSPLASTIC SYNDROME

REACTIONS (2)
  - BONE MARROW FAILURE [None]
  - COLITIS ULCERATIVE [None]
